FAERS Safety Report 22194870 (Version 2)
Quarter: 2023Q2

REPORT INFORMATION
  Report Type: Spontaneous
  Country: AU (occurrence: AU)
  Receive Date: 20230411
  Receipt Date: 20230413
  Transmission Date: 20230722
  Serious: Yes (Hospitalization, Other)
  Sender: FDA-Public Use
  Company Number: AU-BRISTOL-MYERS SQUIBB COMPANY-2023-048155

PATIENT
  Age: 66 Year
  Sex: Male
  Weight: 86 kg

DRUGS (2)
  1. NIVOLUMAB [Suspect]
     Active Substance: NIVOLUMAB
     Indication: Metastatic malignant melanoma
  2. IPILIMUMAB [Suspect]
     Active Substance: IPILIMUMAB
     Indication: Metastatic malignant melanoma

REACTIONS (5)
  - Immune-mediated enterocolitis [Unknown]
  - Immune-mediated thyroiditis [Unknown]
  - Immune-mediated lung disease [Unknown]
  - Respiratory failure [Recovering/Resolving]
  - Antisynthetase syndrome [Unknown]
